FAERS Safety Report 10079193 (Version 1)
Quarter: 2014Q2

REPORT INFORMATION
  Report Type: Spontaneous
  Country: US (occurrence: None)
  Receive Date: 20140414
  Receipt Date: 20140414
  Transmission Date: 20141212
  Serious: Yes (Death)
  Sender: FDA-Public Use
  Company Number: None

PATIENT
  Age: 77 Year
  Sex: Male
  Weight: 90.72 kg

DRUGS (35)
  1. HUMIRA [Suspect]
     Indication: RHEUMATOID ARTHRITIS
     Route: 058
     Dates: start: 20110113, end: 20110411
  2. FLECAINIDE ACETATE [Concomitant]
  3. CARDIZEM LA [Concomitant]
  4. TAMSULOSIN HCL [Concomitant]
  5. PREDNISONE [Concomitant]
  6. METOPROLOL SUCC ER [Concomitant]
  7. HYDROXYCHLOROQUINE [Concomitant]
  8. PANTOPRAZOLE [Concomitant]
  9. MIRTAZAPINE (RAMERON) [Concomitant]
  10. SULFASALAZINE [Concomitant]
  11. ASPIRIN [Concomitant]
  12. CENTRUM SILVER [Concomitant]
  13. MEGACE [Concomitant]
  14. AMIGIZA [Concomitant]
  15. FORTEO [Concomitant]
  16. GOLD SODIUM THIOMLATE [Concomitant]
  17. HYDROCODON-ACETAMINOPH [Concomitant]
  18. DIAZEPAM (VALIUM) [Concomitant]
  19. TRAMADOL-ACETAMINO [Concomitant]
  20. VOLTAREN GEL [Concomitant]
  21. BUSPIRONE [Concomitant]
  22. CARDIZEM [Concomitant]
  23. FLECAINIDE [Concomitant]
  24. FLOMAX [Concomitant]
  25. ISONIAZID [Concomitant]
  26. METROPOLOL SUCCINATE [Concomitant]
  27. NORCO [Concomitant]
  28. PLAQUENIL [Concomitant]
  29. PRADAXA [Concomitant]
  30. PREDNISONE [Concomitant]
  31. PROTONIX [Concomitant]
  32. REMERON [Concomitant]
  33. ULTRACET [Concomitant]
  34. VALIUM [Concomitant]
  35. VITAMIN B-6 [Concomitant]

REACTIONS (13)
  - Sepsis [None]
  - Pain [None]
  - Nerve injury [None]
  - Rib fracture [None]
  - Compression fracture [None]
  - Pneumonia [None]
  - Urinary tract infection [None]
  - Respiratory tract infection fungal [None]
  - Convulsion [None]
  - Neuropathy peripheral [None]
  - Abasia [None]
  - Weight decreased [None]
  - Latent tuberculosis [None]
